FAERS Safety Report 24284481 (Version 1)
Quarter: 2024Q3

REPORT INFORMATION
  Report Type: Spontaneous
  Country: US (occurrence: US)
  Receive Date: 20240905
  Receipt Date: 20240905
  Transmission Date: 20241016
  Serious: Yes (Hospitalization)
  Sender: Alora Pharma
  Company Number: US-ACELLA PHARMACEUTICALS, LLC-2024ALO00420

PATIENT
  Age: 24 Year
  Sex: Female
  Weight: 145.15 kg

DRUGS (9)
  1. HYOSCYAMINE [Suspect]
     Active Substance: HYOSCYAMINE
     Indication: Crohn^s disease
     Dosage: 0.125 MG, 4X/DAY (ONE TAB EVERY 6 HOURS AS NEEDED)
     Route: 048
  2. HYOSCYAMINE [Suspect]
     Active Substance: HYOSCYAMINE
     Indication: Abdominal pain
     Dosage: 0.125 MG, 1X/DAY AS NEEDED
     Route: 048
     Dates: end: 202408
  3. DYCOSAMINE [Concomitant]
  4. DEXILANT [Concomitant]
     Active Substance: DEXLANSOPRAZOLE
     Dosage: 60 MG
  5. MESALAMINE EXTENDED RELEASE [Concomitant]
  6. POTASSIUM CITRATE [Concomitant]
     Active Substance: POTASSIUM CITRATE
     Dosage: 4320 MG, 1X/DAY
  7. METFORMIN [Concomitant]
     Active Substance: METFORMIN HYDROCHLORIDE
     Dosage: 1000 MG, 2X/DAY
  8. FAMOTIDINE [Concomitant]
     Active Substance: FAMOTIDINE
     Dosage: 40 MG
  9. TRI-SPRINTEC [Concomitant]
     Active Substance: ETHINYL ESTRADIOL\NORGESTIMATE
     Indication: Polycystic ovarian syndrome

REACTIONS (4)
  - Polyp [Recovered/Resolved]
  - Faecaloma [Recovering/Resolving]
  - Somnolence [Unknown]
  - Enteritis [Unknown]

NARRATIVE: CASE EVENT DATE: 20240201
